FAERS Safety Report 12700250 (Version 6)
Quarter: 2017Q1

REPORT INFORMATION
  Report Type: Spontaneous
  Country: US (occurrence: US)
  Receive Date: 20160830
  Receipt Date: 20170131
  Transmission Date: 20170428
  Serious: Yes (Hospitalization, Other)
  Sender: FDA-Public Use
  Company Number: US-TAKEDA-2016MPI007525

PATIENT
  Age: 85 Year
  Sex: Male
  Weight: 95 kg

DRUGS (2)
  1. NINLARO [Suspect]
     Active Substance: IXAZOMIB
     Indication: PLASMA CELL MYELOMA
     Dosage: 3 MG, UNK
     Route: 048
     Dates: start: 20160902
  2. DEXAMETHASONE. [Suspect]
     Active Substance: DEXAMETHASONE
     Indication: PLASMA CELL MYELOMA
     Dosage: UNK
     Route: 065

REACTIONS (11)
  - Asthenia [Unknown]
  - Plasma cell myeloma [Unknown]
  - Haemoglobin decreased [Unknown]
  - Fatigue [Unknown]
  - Oxygen saturation decreased [Unknown]
  - Renal failure [Unknown]
  - Peripheral swelling [Unknown]
  - Sciatica [Unknown]
  - Viral infection [Unknown]
  - Pyrexia [Unknown]
  - Off label use [Unknown]

NARRATIVE: CASE EVENT DATE: 20161205
